FAERS Safety Report 7429540-8 (Version None)
Quarter: 2011Q2

REPORT INFORMATION
  Report Type: 
  Country: None (occurrence: None)
  Receive Date: 20110421
  Receipt Date: 20110415
  Transmission Date: 20111010
  Serious: Yes (Death, Hospitalization)
  Sender: FDA-Public Use
  Company Number: A0898989A

PATIENT
  Age: 57 Year
  Sex: Female

DRUGS (1)
  1. AVANDIA [Suspect]
     Indication: TYPE 2 DIABETES MELLITUS
     Dosage: 4MG TWICE PER DAY
     Route: 048
     Dates: start: 20040414, end: 20050328

REACTIONS (9)
  - CARDIAC FAILURE CONGESTIVE [None]
  - HYPOXIC-ISCHAEMIC ENCEPHALOPATHY [None]
  - PULMONARY EMBOLISM [None]
  - CARDIOVASCULAR DISORDER [None]
  - ENDOCARDITIS ENTEROCOCCAL [None]
  - CARDIAC ARREST [None]
  - MITRAL VALVE REPLACEMENT [None]
  - AORTIC VALVE REPLACEMENT [None]
  - ENTEROCOCCAL INFECTION [None]
